FAERS Safety Report 11663891 (Version 2)
Quarter: 2015Q4

REPORT INFORMATION
  Report Type: Spontaneous
  Country: IR (occurrence: IR)
  Receive Date: 20151027
  Receipt Date: 20151028
  Transmission Date: 20160304
  Serious: Yes (Hospitalization)
  Sender: FDA-Public Use
  Company Number: IR-FRESENIUS KABI-FK201505256

PATIENT
  Age: 47 Year
  Sex: Male

DRUGS (1)
  1. DEXAMETHASONE INJECTION (MANUFACTURER UNKNOWN) [Suspect]
     Active Substance: DEXAMETHASONE
     Indication: PRODUCT USED FOR UNKNOWN INDICATION
     Route: 030

REACTIONS (3)
  - Self-medication [Recovered/Resolved]
  - Intentional product misuse [Recovered/Resolved]
  - Myocarditis [Recovered/Resolved]
